FAERS Safety Report 19405814 (Version 1)
Quarter: 2021Q2

REPORT INFORMATION
  Report Type: Spontaneous
  Country: BR (occurrence: BR)
  Receive Date: 20210611
  Receipt Date: 20210611
  Transmission Date: 20210717
  Serious: Yes (Other)
  Sender: FDA-Public Use
  Company Number: BR-CELGENEUS-BRA-20210600401

PATIENT
  Sex: Male
  Weight: 100 kg

DRUGS (2)
  1. REVLIMID [Suspect]
     Active Substance: LENALIDOMIDE
     Indication: PLASMA CELL MYELOMA
     Dosage: 15 MILLIGRAM (MAINTENANCE)
     Route: 048
     Dates: start: 202011, end: 202104
  2. TEMODAL [Concomitant]
     Active Substance: TEMOZOLOMIDE
     Indication: PRODUCT USED FOR UNKNOWN INDICATION
     Route: 065

REACTIONS (2)
  - Brain neoplasm [Unknown]
  - COVID-19 [Unknown]
